FAERS Safety Report 12449679 (Version 2)
Quarter: 2016Q4

REPORT INFORMATION
  Report Type: Spontaneous
  Country: JP (occurrence: JP)
  Receive Date: 20160609
  Receipt Date: 20161124
  Transmission Date: 20170207
  Serious: Yes (Hospitalization)
  Sender: FDA-Public Use
  Company Number: JP-TAKEDA-2016TJP011119AA

PATIENT
  Age: 51 Year
  Sex: Male
  Weight: 78 kg

DRUGS (2)
  1. ROZEREM [Suspect]
     Active Substance: RAMELTEON
     Indication: INSOMNIA
     Dosage: UNK UNK, QD
     Route: 048
     Dates: start: 201604, end: 20160523
  2. RIZE                               /00624801/ [Concomitant]
     Active Substance: CLOTIAZEPAM
     Indication: INSOMNIA
     Dosage: 25 MG, UNK
     Route: 048
     Dates: start: 201604, end: 20160526

REACTIONS (1)
  - Photosensitivity reaction [Recovering/Resolving]

NARRATIVE: CASE EVENT DATE: 20160509
